FAERS Safety Report 20222813 (Version 2)
Quarter: 2022Q1

REPORT INFORMATION
  Report Type: Spontaneous
  Country: JP (occurrence: JP)
  Receive Date: 20211223
  Receipt Date: 20220217
  Transmission Date: 20220423
  Serious: Yes (Other)
  Sender: FDA-Public Use
  Company Number: JP-JNJFOC-20211156771

PATIENT

DRUGS (5)
  1. DARATUMUMAB [Suspect]
     Active Substance: DARATUMUMAB
     Indication: Product used for unknown indication
     Route: 058
  2. DARATUMUMAB [Suspect]
     Active Substance: DARATUMUMAB
     Dosage: DOSE UNKNOWN
     Route: 058
  3. KYPROLIS [Suspect]
     Active Substance: CARFILZOMIB
     Indication: Product used for unknown indication
     Dosage: DOSE UNKNOWN
     Route: 041
  4. KYPROLIS [Suspect]
     Active Substance: CARFILZOMIB
     Dosage: DOSE UNKNOWN
     Route: 041
  5. DEXAMETHASONE [Concomitant]
     Active Substance: DEXAMETHASONE
     Dosage: DOSE UNKNOWN
     Route: 065

REACTIONS (1)
  - Cytopenia [Recovering/Resolving]
